FAERS Safety Report 5375533-4 (Version None)
Quarter: 2007Q2

REPORT INFORMATION
  Report Type: 
  Country: None (occurrence: None)
  Receive Date: 20070627
  Receipt Date: 20070613
  Transmission Date: 20071010
  Serious: Yes (Hospitalization)
  Sender: FDA-Public Use
  Company Number: CLOF-10244

PATIENT
  Age: 14 Year
  Sex: Male

DRUGS (1)
  1. CLOFARABINE. MFR: GENZYME [Suspect]
     Indication: ACUTE LYMPHOCYTIC LEUKAEMIA
     Dates: start: 20060203

REACTIONS (7)
  - BONE MARROW FAILURE [None]
  - INSOMNIA [None]
  - MOUTH HAEMORRHAGE [None]
  - MUCOSAL INFLAMMATION [None]
  - ORAL HERPES [None]
  - SOFT TISSUE NECROSIS [None]
  - STOMATITIS [None]
